FAERS Safety Report 13479333 (Version 2)
Quarter: 2017Q3

REPORT INFORMATION
  Report Type: Spontaneous
  Country: PL (occurrence: PL)
  Receive Date: 20170425
  Receipt Date: 20170728
  Transmission Date: 20171127
  Serious: Yes (Hospitalization)
  Sender: FDA-Public Use
  Company Number: PL-EMD SERONO-8151059

PATIENT
  Age: 32 Year
  Sex: Male
  Weight: 80 kg

DRUGS (1)
  1. REBIF [Suspect]
     Active Substance: INTERFERON BETA-1A
     Indication: PRODUCT USED FOR UNKNOWN INDICATION
     Route: 058
     Dates: start: 2009, end: 201701

REACTIONS (4)
  - Hypertension [Unknown]
  - Pyrexia [Recovered/Resolved]
  - Skin discolouration [Recovered/Resolved]
  - General physical condition abnormal [Recovered/Resolved]

NARRATIVE: CASE EVENT DATE: 201612
